FAERS Safety Report 8818835 (Version 3)
Quarter: 2012Q4

REPORT INFORMATION
  Report Type: Report from Study
  Country: JP (occurrence: JP)
  Receive Date: 20121001
  Receipt Date: 20121226
  Transmission Date: 20130627
  Serious: Yes (Hospitalization)
  Sender: FDA-Public Use
  Company Number: PHHY2012JP084536

PATIENT
  Age: 61 Year
  Sex: Male

DRUGS (6)
  1. LEPONEX / CLOZARIL [Suspect]
     Indication: SCHIZOPHRENIA, PARANOID TYPE
     Dosage: 450 mg
     Route: 048
     Dates: start: 20120529
  2. LEXOTAN [Suspect]
     Dosage: 5 mg
     Route: 048
     Dates: start: 20120912
  3. FLUNITRAZEPAM [Suspect]
     Dosage: 1 mg
     Route: 048
     Dates: start: 20120912
  4. NICOTINAMIDE [Concomitant]
  5. NE-SOFT [Concomitant]
  6. GLIMEPIRIDE [Concomitant]

REACTIONS (6)
  - Fracture [Not Recovered/Not Resolved]
  - Fall [Unknown]
  - Diabetes mellitus [Not Recovered/Not Resolved]
  - Glucose tolerance impaired [Unknown]
  - Nasopharyngitis [Recovered/Resolved]
  - Salivary hypersecretion [Not Recovered/Not Resolved]
